FAERS Safety Report 12531606 (Version 2)
Quarter: 2018Q4

REPORT INFORMATION
  Report Type: Spontaneous
  Country: RU (occurrence: RU)
  Receive Date: 20160706
  Receipt Date: 20181011
  Transmission Date: 20190204
  Serious: Yes (Hospitalization)
  Sender: FDA-Public Use
  Company Number: RU-MYLANLABS-2016M1027706

PATIENT
  Age: 61 Year
  Sex: Male
  Weight: 71 kg

DRUGS (1)
  1. WARFARIN [Suspect]
     Active Substance: WARFARIN
     Indication: MITRAL VALVE REPLACEMENT
     Dosage: 7.5 MG/DAY
     Route: 065

REACTIONS (3)
  - Spinal cord compression [Recovering/Resolving]
  - Extradural haematoma [Recovered/Resolved]
  - Anaemia [Recovered/Resolved]
